FAERS Safety Report 21537073 (Version 1)
Quarter: 2022Q4

REPORT INFORMATION
  Report Type: Spontaneous
  Country: US (occurrence: None)
  Receive Date: 20221101
  Receipt Date: 20221101
  Transmission Date: 20230113
  Serious: No
  Sender: FDA-Public Use
  Company Number: None

PATIENT
  Age: 23 Year
  Sex: Female
  Weight: 51.75 kg

DRUGS (2)
  1. DEXTROAMPHET SACCHARAT, AMPHET ASPARTATE, DEXTROAMPHET SULFATE AND AMP [Suspect]
     Active Substance: AMPHETAMINE ASPARTATE\AMPHETAMINE SULFATE\DEXTROAMPHETAMINE SACCHARATE\DEXTROAMPHETAMINE SULFATE
     Indication: Attention deficit hyperactivity disorder
  2. DEXTROAMPHETAMINE [Concomitant]
     Active Substance: DEXTROAMPHETAMINE

REACTIONS (11)
  - Product substitution issue [None]
  - Drug ineffective [None]
  - Heart rate increased [None]
  - Blood pressure increased [None]
  - Mood swings [None]
  - Anhedonia [None]
  - Lethargy [None]
  - Fatigue [None]
  - Increased appetite [None]
  - Peripheral vascular disorder [None]
  - Dyspnoea [None]

NARRATIVE: CASE EVENT DATE: 20221013
